FAERS Safety Report 21157698 (Version 3)
Quarter: 2022Q3

REPORT INFORMATION
  Report Type: Report from Study
  Country: GB (occurrence: GB)
  Receive Date: 20220801
  Receipt Date: 20220907
  Transmission Date: 20221026
  Serious: No
  Sender: FDA-Public Use
  Company Number: GB-GSK-GB2022EME111914

PATIENT

DRUGS (1)
  1. BELANTAMAB MAFODOTIN [Suspect]
     Active Substance: BELANTAMAB MAFODOTIN
     Indication: Plasma cell myeloma
     Dosage: UNK

REACTIONS (9)
  - Keratopathy [Unknown]
  - Visual acuity tests abnormal [Unknown]
  - Vision blurred [Unknown]
  - Dry eye [Unknown]
  - Photophobia [Unknown]
  - Corneal toxicity [Unknown]
  - Quality of life decreased [Unknown]
  - Keratitis [Unknown]
  - Corneal disorder [Unknown]
